FAERS Safety Report 20084506 (Version 1)
Quarter: 2021Q4

REPORT INFORMATION
  Report Type: Report from Study
  Country: CA (occurrence: CA)
  Receive Date: 20211118
  Receipt Date: 20211118
  Transmission Date: 20220303
  Serious: Yes (Hospitalization)
  Sender: FDA-Public Use
  Company Number: CA-ABBVIE-21K-028-4164146-00

PATIENT
  Sex: Female

DRUGS (1)
  1. HUMIRA [Suspect]
     Active Substance: ADALIMUMAB
     Indication: Crohn^s disease
     Route: 058
     Dates: start: 20150612

REACTIONS (7)
  - Renal cyst [Recovered/Resolved]
  - Cyst rupture [Recovered/Resolved]
  - Herpes zoster [Recovered/Resolved]
  - Rotator cuff syndrome [Unknown]
  - Ear disorder [Unknown]
  - Jaw disorder [Unknown]
  - Accident at work [Unknown]

NARRATIVE: CASE EVENT DATE: 20190101
